FAERS Safety Report 6465917-5 (Version None)
Quarter: 2009Q4

REPORT INFORMATION
  Report Type: 
  Country: None (occurrence: None)
  Receive Date: 20091202
  Receipt Date: 20091120
  Transmission Date: 20100525
  Serious: Yes (Death, Hospitalization)
  Sender: FDA-Public Use
  Company Number: US-BIOGENIDEC-2009BI038221

PATIENT
  Age: 52 Year
  Sex: Female
  Weight: 90 kg

DRUGS (12)
  1. TYSABRI [Suspect]
     Indication: MULTIPLE SCLEROSIS
     Route: 042
     Dates: start: 20081216, end: 20090820
  2. BACLOFEN [Concomitant]
     Indication: MUSCLE SPASMS
     Route: 048
     Dates: start: 20060918
  3. CYMBALTA [Concomitant]
     Indication: DEPRESSION
     Route: 048
     Dates: start: 20071016
  4. LISINOPRIL [Concomitant]
     Indication: HYPERTENSION
     Route: 048
     Dates: start: 20060918
  5. LYRICA [Concomitant]
     Indication: NEURALGIA
     Route: 048
     Dates: start: 20071001
  6. MIRAPEX [Concomitant]
     Indication: EXTRAPYRAMIDAL DISORDER
     Route: 048
     Dates: start: 20080204
  7. NEXIUM [Concomitant]
     Indication: OESOPHAGITIS
     Route: 048
     Dates: start: 20060918
  8. OXYBUTYNIN CHOLORIDE [Concomitant]
     Indication: URINARY INCONTINENCE
     Route: 048
     Dates: start: 20060918
  9. PRIMIDONE [Concomitant]
     Indication: TREMOR
     Route: 048
     Dates: start: 20070529
  10. SEROQUEL [Concomitant]
     Indication: INSOMNIA
     Route: 048
     Dates: start: 20060918
  11. ULTRAM [Concomitant]
     Indication: NEURALGIA
     Route: 048
     Dates: start: 20060918
  12. VICODIN [Concomitant]
     Indication: BACK PAIN
     Route: 048
     Dates: start: 20081010

REACTIONS (1)
  - DEATH [None]
